FAERS Safety Report 4382628-0 (Version None)
Quarter: 2004Q2

REPORT INFORMATION
  Report Type: 
  Country: None (occurrence: None)
  Receive Date: 20040622
  Receipt Date: 20040305
  Transmission Date: 20050107
  Serious: Yes (Other)
  Sender: FDA-Public Use
  Company Number: US-GLAXOSMITHKLINE-A0501712A

PATIENT
  Age: 74 Year
  Sex: Female
  Weight: 55.5 kg

DRUGS (3)
  1. ADVAIR DISKUS 100/50 [Suspect]
     Indication: DRUG USE FOR UNKNOWN INDICATION
     Route: 055
  2. SEREVENT [Suspect]
     Indication: DRUG USE FOR UNKNOWN INDICATION
     Route: 055
  3. FLOVENT [Concomitant]
     Route: 055

REACTIONS (9)
  - DENTAL CARIES [None]
  - ENDODONTIC PROCEDURE [None]
  - EPISTAXIS [None]
  - HAEMOPTYSIS [None]
  - INSOMNIA [None]
  - LARYNGITIS [None]
  - PHARYNGOLARYNGEAL PAIN [None]
  - THROAT IRRITATION [None]
  - TOOTH LOSS [None]
